FAERS Safety Report 13616756 (Version 1)
Quarter: 2017Q2

REPORT INFORMATION
  Report Type: Spontaneous
  Country: US (occurrence: US)
  Receive Date: 20170606
  Receipt Date: 20170606
  Transmission Date: 20170830
  Serious: No
  Sender: FDA-Public Use
  Company Number: US-GILEAD-2017-0275864

PATIENT
  Age: 57 Year
  Sex: Male

DRUGS (1)
  1. TRUVADA [Suspect]
     Active Substance: EMTRICITABINE\TENOFOVIR DISOPROXIL FUMARATE
     Indication: PROPHYLAXIS AGAINST HIV INFECTION
     Dosage: UNK
     Route: 065
     Dates: start: 201602, end: 201607

REACTIONS (4)
  - Blood creatinine increased [Unknown]
  - Syphilis [Recovered/Resolved]
  - Chlamydial infection [Recovered/Resolved]
  - Gonorrhoea [Recovered/Resolved]
